FAERS Safety Report 23044491 (Version 2)
Quarter: 2023Q4

REPORT INFORMATION
  Report Type: Spontaneous
  Country: HR (occurrence: HR)
  Receive Date: 20231009
  Receipt Date: 20231208
  Transmission Date: 20240109
  Serious: Yes (Other)
  Sender: FDA-Public Use
  Company Number: HR-PFIZER INC-PV202300161293

PATIENT
  Age: 65 Year
  Sex: Female

DRUGS (9)
  1. IBANDRONIC ACID [Suspect]
     Active Substance: IBANDRONIC ACID
     Indication: Metastases to bone
     Dosage: UNK
     Route: 065
     Dates: start: 201809, end: 202010
  2. IBANDRONIC ACID [Suspect]
     Active Substance: IBANDRONIC ACID
     Dosage: UNK
     Route: 065
     Dates: end: 202306
  3. FULVESTRANT [Suspect]
     Active Substance: FULVESTRANT
     Indication: Breast cancer metastatic
     Dosage: UNK
     Route: 065
     Dates: start: 201810
  4. IBRANCE [Suspect]
     Active Substance: PALBOCICLIB
     Indication: Breast cancer metastatic
     Dosage: UNK
     Route: 065
     Dates: end: 202208
  5. IBRANCE [Suspect]
     Active Substance: PALBOCICLIB
     Dosage: UNK
     Route: 065
     Dates: start: 201810, end: 201902
  6. IBRANCE [Suspect]
     Active Substance: PALBOCICLIB
     Dosage: 23RD CYCLE
     Route: 065
     Dates: start: 20230914
  7. IBRANCE [Suspect]
     Active Substance: PALBOCICLIB
     Dosage: UNK
     Route: 065
     Dates: end: 202109
  8. IBRANCE [Suspect]
     Active Substance: PALBOCICLIB
     Dosage: 125 MG
     Route: 065
     Dates: start: 20230817
  9. IBRANCE [Suspect]
     Active Substance: PALBOCICLIB
     Route: 048
     Dates: start: 20181019, end: 201902

REACTIONS (14)
  - Neutropenia [Recovered/Resolved]
  - Osteonecrosis of jaw [Unknown]
  - Leukopenia [Unknown]
  - Neutrophil count decreased [Unknown]
  - Neoplasm progression [Unknown]
  - Arthralgia [Unknown]
  - Influenza [Recovered/Resolved]
  - White blood cell count decreased [Unknown]
  - Dizziness [Unknown]
  - Pain in jaw [Unknown]
  - Swelling face [Unknown]
  - Platelet count decreased [Unknown]
  - Vasodilatation [Unknown]
  - COVID-19 [Recovered/Resolved]

NARRATIVE: CASE EVENT DATE: 20190201
